FAERS Safety Report 19380201 (Version 2)
Quarter: 2025Q2

REPORT INFORMATION
  Report Type: Spontaneous
  Country: JP (occurrence: JP)
  Receive Date: 20210607
  Receipt Date: 20250530
  Transmission Date: 20250716
  Serious: Yes (Other)
  Sender: AUROBINDO
  Company Number: JP-EMA-20170921-KSEVHUMANWT-131241847

PATIENT
  Age: 35 Year
  Sex: Female

DRUGS (6)
  1. MELPHALAN [Suspect]
     Active Substance: MELPHALAN
     Indication: Cord blood transplant therapy
     Route: 065
     Dates: start: 2016
  2. BUSULFEX [Suspect]
     Active Substance: BUSULFAN
     Indication: Cord blood transplant therapy
     Route: 065
     Dates: start: 2016
  3. METHOTREXATE [Suspect]
     Active Substance: METHOTREXATE
     Indication: Prophylaxis against graft versus host disease
     Route: 065
     Dates: start: 20161111
  4. TACROLIMUS [Suspect]
     Active Substance: TACROLIMUS
     Indication: Prophylaxis against graft versus host disease
     Route: 065
     Dates: start: 20161111
  5. FLUDARABINE [Suspect]
     Active Substance: FLUDARABINE PHOSPHATE
     Indication: Cord blood transplant therapy
     Route: 065
     Dates: start: 2016
  6. THROMBOMODULIN ALFA [Concomitant]
     Active Substance: THROMBOMODULIN ALFA
     Indication: Product used for unknown indication
     Route: 065

REACTIONS (3)
  - Thrombotic microangiopathy [Recovering/Resolving]
  - Cytomegalovirus test positive [Unknown]
  - Sepsis [Unknown]
